FAERS Safety Report 6649989-0 (Version None)
Quarter: 2010Q1

REPORT INFORMATION
  Report Type: 
  Country: None (occurrence: None)
  Receive Date: 20100324
  Receipt Date: 20100324
  Transmission Date: 20100710
  Serious: Yes (Hospitalization, Other)
  Sender: FDA-Public Use
  Company Number: None

PATIENT
  Age: 11 Year
  Sex: Female
  Weight: 41.7309 kg

DRUGS (2)
  1. ZYRTEC [Suspect]
     Indication: SEASONAL ALLERGY
     Dosage: 1/2 TAB = 5MG PRN PO
     Route: 048
  2. AUGMENTIN [Concomitant]

REACTIONS (17)
  - AMNESIA [None]
  - CRYING [None]
  - DECREASED INTEREST [None]
  - DISTURBANCE IN ATTENTION [None]
  - EMOTIONAL DISORDER [None]
  - FATIGUE [None]
  - FEAR [None]
  - FLAT AFFECT [None]
  - FORMICATION [None]
  - HALLUCINATION [None]
  - HEADACHE [None]
  - MIGRAINE [None]
  - NIGHTMARE [None]
  - PANIC REACTION [None]
  - PRURITUS [None]
  - STARING [None]
  - VISION BLURRED [None]
